FAERS Safety Report 10351324 (Version 3)
Quarter: 2014Q3

REPORT INFORMATION
  Report Type: Report from Study
  Country: BE (occurrence: BE)
  Receive Date: 20140730
  Receipt Date: 20140903
  Transmission Date: 20150326
  Serious: Yes (Hospitalization)
  Sender: FDA-Public Use
  Company Number: BE-GLAXOSMITHKLINE-B1018931A

PATIENT
  Age: 71 Year
  Sex: Female

DRUGS (5)
  1. SOTALEX [Concomitant]
     Active Substance: SOTALOL
     Indication: ARRHYTHMIA
     Dosage: 160MG PER DAY
     Route: 048
     Dates: start: 20131014
  2. DOCETAXEL [Suspect]
     Active Substance: DOCETAXEL
     Indication: BREAST CANCER
     Dosage: 75MGM2 EVERY 3 WEEKS
     Route: 042
     Dates: start: 20100205, end: 20100407
  3. TRASTUZUMAB [Suspect]
     Active Substance: TRASTUZUMAB
     Indication: BREAST CANCER
     Dosage: 2MGK WEEKLY
     Route: 042
     Dates: start: 20100205, end: 20100421
  4. LAPATINIB [Suspect]
     Active Substance: LAPATINIB
     Indication: BREAST CANCER
     Dosage: 1500MG PER DAY
     Route: 048
     Dates: start: 20100611, end: 20110125
  5. ASAFLOW [Concomitant]
     Active Substance: ASPIRIN
     Indication: PROPHYLAXIS
     Dosage: 80MG PER DAY
     Route: 048
     Dates: start: 20091026

REACTIONS (1)
  - Bradycardia [Recovered/Resolved]

NARRATIVE: CASE EVENT DATE: 20131014
